FAERS Safety Report 18129756 (Version 1)
Quarter: 2020Q3

REPORT INFORMATION
  Report Type: Spontaneous
  Country: US (occurrence: US)
  Receive Date: 20200810
  Receipt Date: 20200810
  Transmission Date: 20201103
  Serious: No
  Sender: FDA-Public Use
  Company Number: US-PERRIGO-19US015672

PATIENT
  Age: 82 Year
  Sex: Female

DRUGS (1)
  1. LORATADINE. [Suspect]
     Active Substance: LORATADINE
     Indication: WRONG PRODUCT ADMINISTERED
     Dosage: 10 MG, QD
     Route: 048
     Dates: start: 20191104, end: 20191211

REACTIONS (2)
  - Drug ineffective [Unknown]
  - Wrong product administered [Recovered/Resolved]

NARRATIVE: CASE EVENT DATE: 20191104
